FAERS Safety Report 10052103 (Version 1)
Quarter: 2014Q2

REPORT INFORMATION
  Report Type: Spontaneous
  Country: US (occurrence: None)
  Receive Date: 20140401
  Receipt Date: 20140401
  Transmission Date: 20141212
  Serious: Yes (Other)
  Sender: FDA-Public Use
  Company Number: None

PATIENT
  Age: 23 Year
  Sex: Male
  Weight: 95.26 kg

DRUGS (1)
  1. DIVALPROEX SODIUM DELAYED RELEASE [Suspect]
     Indication: EPILEPSY
     Route: 048
     Dates: start: 20140227, end: 20140228

REACTIONS (2)
  - Rash pruritic [None]
  - Product substitution issue [None]
